FAERS Safety Report 14089228 (Version 1)
Quarter: 2017Q4

REPORT INFORMATION
  Report Type: Spontaneous
  Country: US (occurrence: US)
  Receive Date: 20171013
  Receipt Date: 20171013
  Transmission Date: 20180321
  Serious: No
  Sender: FDA-Public Use
  Company Number: US-GILEAD-2017-0298682

PATIENT
  Sex: Male

DRUGS (2)
  1. DESCOVY [Suspect]
     Active Substance: EMTRICITABINE\TENOFOVIR ALAFENAMIDE FUMARATE
     Indication: PRODUCT USED FOR UNKNOWN INDICATION
     Route: 065
  2. RIFAMPIN. [Concomitant]
     Active Substance: RIFAMPIN
     Dosage: UNK

REACTIONS (2)
  - Feeling abnormal [Not Recovered/Not Resolved]
  - Staphylococcal infection [Unknown]
